FAERS Safety Report 5578582-6 (Version None)
Quarter: 2007Q4

REPORT INFORMATION
  Report Type: 
  Country: None (occurrence: None)
  Receive Date: 20071227
  Receipt Date: 20071219
  Transmission Date: 20080405
  Serious: Yes (Hospitalization)
  Sender: FDA-Public Use
  Company Number: 2007SP024388

PATIENT
  Age: 51 Year
  Sex: Female

DRUGS (6)
  1. TEMODAL [Suspect]
     Indication: GLIOBLASTOMA
     Dosage: 120 MG; QD; PO
     Route: 048
     Dates: start: 20070912, end: 20071024
  2. DEPAKENE [Suspect]
     Indication: EPILEPSY
     Dosage: 500 MG; BID; PO
     Route: 048
     Dates: start: 20070901, end: 20071128
  3. KEPPRA [Suspect]
     Indication: EPILEPSY
     Dosage: 750 MG; BID; PO
     Route: 048
     Dates: start: 20070714
  4. MEDROL [Suspect]
     Indication: EPILEPSY
     Dosage: 32 MG; QD; PO
     Route: 048
     Dates: start: 20070714, end: 20071024
  5. ONDANSETRON HCL [Suspect]
     Indication: NAUSEA
     Dosage: PO
     Route: 048
     Dates: start: 20070912, end: 20071024
  6. AUGMENTIN '200' [Suspect]
     Indication: BRONCHITIS
     Dosage: 2 DF; ONCE; PO
     Route: 048
     Dates: start: 20071102, end: 20071102

REACTIONS (1)
  - HEPATITIS CHOLESTATIC [None]
